FAERS Safety Report 12881467 (Version 2)
Quarter: 2016Q4

REPORT INFORMATION
  Report Type: Spontaneous
  Country: CN (occurrence: CN)
  Receive Date: 20161025
  Receipt Date: 20161028
  Transmission Date: 20170207
  Serious: Yes (Death, Other)
  Sender: FDA-Public Use
  Company Number: CN-PFIZER INC-2016495270

PATIENT
  Age: 33 Year
  Sex: Male

DRUGS (14)
  1. COMPOUND SULFAMETHOXAZOLE [Concomitant]
  2. CALCITRIOL. [Concomitant]
     Active Substance: CALCITRIOL
  3. VFEND [Suspect]
     Active Substance: VORICONAZOLE
     Indication: FUNGAL INFECTION
     Dosage: 400 MG, 2X/DAY
     Dates: start: 20160910, end: 20161013
  4. MOTILIUM [Concomitant]
     Active Substance: DOMPERIDONE
  5. GANCICLOVIR. [Concomitant]
     Active Substance: GANCICLOVIR
  6. TACROLIMUS. [Concomitant]
     Active Substance: TACROLIMUS
  7. METHYLPREDNISOLONE. [Concomitant]
     Active Substance: METHYLPREDNISOLONE
  8. CEFTRIAXONE SODIUM. [Concomitant]
     Active Substance: CEFTRIAXONE SODIUM
  9. MOXIFLOXACIN. [Concomitant]
     Active Substance: MOXIFLOXACIN
  10. BETALOC ZOK [Concomitant]
     Active Substance: METOPROLOL SUCCINATE
  11. NORVASC [Concomitant]
     Active Substance: AMLODIPINE BESYLATE
  12. POTASSIUM CHLORIDE. [Concomitant]
     Active Substance: POTASSIUM CHLORIDE
  13. ADALAT [Concomitant]
     Active Substance: NIFEDIPINE
  14. CALCIUM [Concomitant]
     Active Substance: CALCIUM

REACTIONS (1)
  - Cardiac arrest [Fatal]

NARRATIVE: CASE EVENT DATE: 20161005
